FAERS Safety Report 16708112 (Version 2)
Quarter: 2019Q3

REPORT INFORMATION
  Report Type: Report from Study
  Country: DE (occurrence: DE)
  Receive Date: 20190815
  Receipt Date: 20190822
  Transmission Date: 20191004
  Serious: Yes (Death, Hospitalization)
  Sender: FDA-Public Use
  Company Number: DE-BEH-2019105604

PATIENT
  Age: 59 Year
  Sex: Female
  Weight: 55 kg

DRUGS (11)
  1. PRIVIGEN [Suspect]
     Active Substance: HUMAN IMMUNOGLOBULIN G
     Indication: HUMORAL IMMUNE DEFECT
     Dosage: 10 GRAM, TOT
     Route: 042
     Dates: start: 20181212, end: 20181212
  2. PRIVIGEN [Suspect]
     Active Substance: HUMAN IMMUNOGLOBULIN G
     Dosage: 10 GRAM, TOT
     Route: 042
     Dates: start: 20190102, end: 20190102
  3. PRIVIGEN [Suspect]
     Active Substance: HUMAN IMMUNOGLOBULIN G
     Dosage: 10 GRAM, TOT
     Route: 042
     Dates: start: 20190123, end: 20190123
  4. PRIVIGEN [Suspect]
     Active Substance: HUMAN IMMUNOGLOBULIN G
     Dosage: 10 GRAM, TOT
     Route: 042
     Dates: start: 20190306, end: 20190306
  5. OMEPRAZOLE. [Concomitant]
     Active Substance: OMEPRAZOLE
     Dosage: 20 MILLIGRAM
     Route: 065
  6. OVESTIN [Concomitant]
     Active Substance: ESTRIOL
     Dosage: 0.5 MILLIGRAM
     Route: 065
  7. NOVALGINA [Concomitant]
     Active Substance: METAMIZOLE SODIUM
     Dosage: 20 MILLIGRAM
     Route: 065
  8. RAMIPRIL. [Concomitant]
     Active Substance: RAMIPRIL
     Dosage: 2.5 MILLIGRAM
     Route: 065
  9. VIANI [Concomitant]
     Active Substance: FLUTICASONE PROPIONATE\SALMETEROL XINAFOATE
     Dosage: 250/50 ?G
     Route: 065
  10. METOPROLOL. [Concomitant]
     Active Substance: METOPROLOL
     Dosage: 47.5 MILLIGRAM
     Route: 065
  11. IKERVIS [Concomitant]
     Active Substance: CYCLOSPORINE
     Route: 065

REACTIONS (3)
  - Atypical pneumonia [Fatal]
  - Dyspnoea [Unknown]
  - Respiratory failure [Fatal]

NARRATIVE: CASE EVENT DATE: 20190703
